FAERS Safety Report 17989415 (Version 1)
Quarter: 2020Q3

REPORT INFORMATION
  Report Type: Spontaneous
  Country: FR (occurrence: FR)
  Receive Date: 20200707
  Receipt Date: 20200707
  Transmission Date: 20201103
  Serious: Yes (Hospitalization, Other)
  Sender: FDA-Public Use
  Company Number: FR-MYLANLABS-2020M1060339

PATIENT
  Age: 65 Year
  Sex: Male

DRUGS (4)
  1. TACROLIMUS. [Suspect]
     Active Substance: TACROLIMUS
     Indication: HEART TRANSPLANT REJECTION
     Dosage: 0.15 MG/KG WITH RESIDUAL TARGET BETWEEN 8 AND 10 NG/ML
     Dates: start: 2017
  2. PREDNISONE. [Suspect]
     Active Substance: PREDNISONE
     Indication: HEART TRANSPLANT REJECTION
     Dosage: 12.5 MILLIGRAM, QD
     Dates: start: 2017
  3. MYCOPHENOLATE MOFETIL. [Suspect]
     Active Substance: MYCOPHENOLATE MOFETIL
     Dosage: UNK
  4. MYCOPHENOLATE MOFETIL. [Suspect]
     Active Substance: MYCOPHENOLATE MOFETIL
     Indication: HEART TRANSPLANT REJECTION
     Dosage: 1000 MILLIGRAM, QD (500 MG, BID)
     Dates: start: 2017

REACTIONS (3)
  - Aspergillus infection [Recovered/Resolved]
  - Osteomyelitis fungal [Recovered/Resolved]
  - Off label use [Unknown]
